FAERS Safety Report 21752004 (Version 1)
Quarter: 2022Q4

REPORT INFORMATION
  Report Type: Spontaneous
  Country: US (occurrence: US)
  Receive Date: 20221220
  Receipt Date: 20221220
  Transmission Date: 20230113
  Serious: Yes (Hospitalization, Other)
  Sender: FDA-Public Use
  Company Number: US-LUPIN PHARMACEUTICALS INC.-2022-14491

PATIENT
  Sex: Male

DRUGS (1)
  1. BUPROPION [Suspect]
     Active Substance: BUPROPION
     Indication: Euphoric mood
     Dosage: 2700 MILLIGRAM, QOD, TABLET, 8 TO 9 RANDOM COMBINATIONS OF 150-MG AND 300-MG TABLETS
     Route: 045

REACTIONS (7)
  - Hyponatraemia [Recovered/Resolved]
  - Psychotic disorder [Recovering/Resolving]
  - Suicidal ideation [Recovering/Resolving]
  - Intentional product misuse [Unknown]
  - Overdose [Unknown]
  - Incorrect route of product administration [Unknown]
  - Wrong technique in product usage process [Unknown]
